FAERS Safety Report 8258258 (Version 3)
Quarter: 2013Q1

REPORT INFORMATION
  Report Type: Spontaneous
  Country: DK (occurrence: DK)
  Receive Date: 20111122
  Receipt Date: 20130305
  Transmission Date: 20140127
  Serious: Yes (Other)
  Sender: FDA-Public Use
  Company Number: DK-JNJFOC-20111107954

PATIENT
  Age: 33 Year
  Sex: Female

DRUGS (2)
  1. STELARA [Suspect]
     Indication: PSORIASIS
     Route: 058
     Dates: start: 2009
  2. STELARA [Suspect]
     Indication: PSORIASIS
     Route: 058

REACTIONS (4)
  - Dizziness [Recovered/Resolved]
  - Visual impairment [Recovered/Resolved]
  - Pain in extremity [Recovered/Resolved]
  - Paraesthesia [Recovered/Resolved]
